FAERS Safety Report 19447753 (Version 2)
Quarter: 2021Q3

REPORT INFORMATION
  Report Type: Spontaneous
  Country: US (occurrence: US)
  Receive Date: 20210622
  Receipt Date: 20210705
  Transmission Date: 20211014
  Serious: No
  Sender: FDA-Public Use
  Company Number: US-LUPIN PHARMACEUTICALS INC.-2021-09630

PATIENT
  Age: 75 Year
  Sex: Female
  Weight: 44.44 kg

DRUGS (2)
  1. GATIFLOXACIN. [Suspect]
     Active Substance: GATIFLOXACIN
     Indication: GLAUCOMA
     Dosage: 4 DROP, QD
     Route: 047
     Dates: start: 20210506, end: 20210612
  2. PREDNISOLONE. [Concomitant]
     Active Substance: PREDNISOLONE
     Indication: PRODUCT USED FOR UNKNOWN INDICATION
     Dosage: UNK
     Route: 065

REACTIONS (3)
  - Throat irritation [Unknown]
  - Oropharyngeal pain [Not Recovered/Not Resolved]
  - Gastrooesophageal reflux disease [Unknown]

NARRATIVE: CASE EVENT DATE: 20210509
